FAERS Safety Report 5455532-4 (Version None)
Quarter: 2007Q3

REPORT INFORMATION
  Report Type: 
  Country: None (occurrence: None)
  Receive Date: 20070913
  Receipt Date: 20070913
  Transmission Date: 20080115
  Serious: Yes (Hospitalization, Disabling)
  Sender: FDA-Public Use
  Company Number: None

PATIENT
  Age: 44 Year
  Sex: Female
  Weight: 74.8435 kg

DRUGS (1)
  1. ADVAIR  UNSURE  UNSURE [Suspect]
     Indication: ASTHMA
     Dosage: 1 PUFF  2X PER DAY  PO
     Route: 048
     Dates: start: 20040401, end: 20040801

REACTIONS (3)
  - APHONIA [None]
  - DYSPHONIA [None]
  - PHARYNGOLARYNGEAL PAIN [None]
